FAERS Safety Report 8438902-1 (Version None)
Quarter: 2012Q2

REPORT INFORMATION
  Report Type: 
  Country: None (occurrence: None)
  Receive Date: 20120615
  Receipt Date: 20120605
  Transmission Date: 20120825
  Serious: Yes (Hospitalization, Other)
  Sender: FDA-Public Use
  Company Number: US-JNJFOC-20120212278

PATIENT
  Sex: Female
  Weight: 81.65 kg

DRUGS (7)
  1. REMICADE [Suspect]
     Route: 042
  2. REMICADE [Suspect]
     Dosage: 5MG/KG DOSE WEIGHT BASED.
     Route: 042
     Dates: start: 20120321
  3. REMICADE [Suspect]
     Indication: CROHN'S DISEASE
     Route: 042
     Dates: start: 20120203
  4. PREDNISONE [Suspect]
     Indication: INTESTINAL OBSTRUCTION
     Route: 065
     Dates: start: 20120201
  5. ACETAMINOPHEN [Concomitant]
     Indication: PREMEDICATION
     Route: 048
  6. MULTIPLE VITAMIN [Concomitant]
     Indication: DISEASE PROGRESSION
     Route: 065
     Dates: start: 20120321
  7. BENADRYL [Concomitant]
     Indication: PREMEDICATION
     Route: 048

REACTIONS (4)
  - INTESTINAL OBSTRUCTION [None]
  - GASTRITIS [None]
  - MUSCULAR WEAKNESS [None]
  - DRUG INEFFECTIVE [None]
